FAERS Safety Report 9851387 (Version 2)
Quarter: 2014Q1

REPORT INFORMATION
  Report Type: Report from Study
  Country: DE (occurrence: DE)
  Receive Date: 20140129
  Receipt Date: 20140218
  Transmission Date: 20141002
  Serious: Yes (Hospitalization)
  Sender: FDA-Public Use
  Company Number: DE-ROCHE-1340048

PATIENT
  Age: 70 Year
  Sex: Female

DRUGS (4)
  1. TOCILIZUMAB [Suspect]
     Indication: RHEUMATOID ARTHRITIS
     Dosage: LAST DOSE OF TOCILIZUMAB PRIOR TO SAE RECEIVED ON 06/AUG/2013.
     Route: 065
     Dates: start: 201109, end: 20130806
  2. TOCILIZUMAB [Suspect]
     Route: 065
     Dates: start: 20131017
  3. TOCILIZUMAB [Suspect]
     Route: 065
     Dates: start: 201109
  4. METHOTREXATE [Concomitant]
     Indication: RHEUMATOID ARTHRITIS
     Route: 048
     Dates: start: 200904, end: 201307

REACTIONS (2)
  - Pneumonia [Recovering/Resolving]
  - Renal failure [Recovering/Resolving]
